FAERS Safety Report 18058551 (Version 2)
Quarter: 2020Q3

REPORT INFORMATION
  Report Type: Spontaneous
  Country: JP (occurrence: JP)
  Receive Date: 20200723
  Receipt Date: 20200825
  Transmission Date: 20201103
  Serious: Yes (Hospitalization, Other)
  Sender: FDA-Public Use
  Company Number: JP-AMGEN-JPNSP2020116997

PATIENT
  Age: 58 Year
  Sex: Male
  Weight: 76.4 kg

DRUGS (12)
  1. KYPROLIS [Suspect]
     Active Substance: CARFILZOMIB
     Indication: PLASMA CELL MYELOMA
     Dosage: 70 MILLIGRAM/SQ. METER
     Route: 041
     Dates: end: 202007
  2. BELSOMRA [Concomitant]
     Active Substance: SUVOREXANT
     Dosage: 20 MG, EVERYDAY
     Route: 048
     Dates: start: 20200518
  3. SILODOSIN. [Concomitant]
     Active Substance: SILODOSIN
     Dosage: 4 MG, EVERYDAY
     Route: 048
  4. BAKTAR [Concomitant]
     Active Substance: SULFAMETHOXAZOLE\TRIMETHOPRIM
     Indication: PROPHYLAXIS
     Dosage: 1 DF, Q56H
     Route: 048
     Dates: start: 20171201
  5. TELMISARTAN. [Concomitant]
     Active Substance: TELMISARTAN
     Dosage: 40 MG, EVERYDAY
     Route: 048
  6. KETOPROFEN. [Concomitant]
     Active Substance: KETOPROFEN
     Dosage: 1 DF, EVERYDAY
     Route: 062
     Dates: start: 20200410
  7. DEXAMETHASONE. [Suspect]
     Active Substance: DEXAMETHASONE
     Indication: PLASMA CELL MYELOMA
     Dosage: UNK
     Route: 065
  8. ACICLOVIR [Concomitant]
     Active Substance: ACYCLOVIR
     Indication: PROPHYLAXIS
     Dosage: 200 MG, EVERYDAY
     Route: 048
     Dates: start: 20171127
  9. KYPROLIS [Suspect]
     Active Substance: CARFILZOMIB
     Dosage: 134.4 MILLIGRAM
     Route: 041
     Dates: start: 20200629, end: 20200713
  10. DEXART [Suspect]
     Active Substance: DEXAMETHASONE SODIUM PHOSPHATE
     Indication: PLASMA CELL MYELOMA
     Dosage: 33 MG
     Route: 065
     Dates: start: 20200629, end: 20200629
  11. AVOLVE [Concomitant]
     Active Substance: DUTASTERIDE
     Dosage: 0.5 MG, EVERYDAY
     Route: 048
     Dates: start: 20171121
  12. LANSOPRAZOLE. [Concomitant]
     Active Substance: LANSOPRAZOLE
     Indication: PROPHYLAXIS
     Dosage: 15 MG, EVERYDAY
     Route: 048
     Dates: start: 20180301

REACTIONS (9)
  - Fluid retention [Unknown]
  - Product prescribing error [Unknown]
  - Acute kidney injury [Recovered/Resolved]
  - Chills [Recovering/Resolving]
  - Acute kidney injury [Recovered/Resolved]
  - Oliguria [Recovering/Resolving]
  - Pyrexia [Recovered/Resolved]
  - Pyrexia [Recovered/Resolved]
  - Chills [Recovering/Resolving]

NARRATIVE: CASE EVENT DATE: 20200706
